FAERS Safety Report 15926524 (Version 2)
Quarter: 2019Q1

REPORT INFORMATION
  Report Type: Spontaneous
  Country: US (occurrence: US)
  Receive Date: 20190205
  Receipt Date: 20190219
  Transmission Date: 20190417
  Serious: No
  Sender: FDA-Public Use
  Company Number: US-ALLERGAN-1848970US

PATIENT
  Age: 63 Year
  Sex: Female
  Weight: 92.97 kg

DRUGS (3)
  1. BOTOX [Suspect]
     Active Substance: ONABOTULINUMTOXINA
     Indication: MIGRAINE
     Dosage: UNK, SINGLE
     Route: 030
     Dates: start: 201809, end: 201809
  2. TWO OTHER DIABETIC MEDICATIONS (UNSPECIFIED) [Concomitant]
     Indication: DIABETES MELLITUS
     Route: 065
  3. METFORMIN [Concomitant]
     Active Substance: METFORMIN HYDROCHLORIDE
     Indication: DIABETES MELLITUS
     Dosage: UNK
     Route: 048

REACTIONS (2)
  - Eyelid ptosis [Recovering/Resolving]
  - Lumbar radiculopathy [Recovering/Resolving]

NARRATIVE: CASE EVENT DATE: 201809
